FAERS Safety Report 10288873 (Version 1)
Quarter: 2014Q3

REPORT INFORMATION
  Report Type: Spontaneous
  Country: CA (occurrence: CA)
  Receive Date: 20140709
  Receipt Date: 20140709
  Transmission Date: 20150326
  Serious: Yes (Death)
  Sender: FDA-Public Use
  Company Number: CA-MERCK-1407CAN003570

PATIENT
  Age: 44 Year
  Sex: Female

DRUGS (1)
  1. TEMODAL [Suspect]
     Active Substance: TEMOZOLOMIDE
     Indication: GLIOBLASTOMA
     Dosage: UNK
     Route: 048
     Dates: end: 2014

REACTIONS (1)
  - Death [Fatal]

NARRATIVE: CASE EVENT DATE: 20140626
